FAERS Safety Report 10238733 (Version 1)
Quarter: 2014Q2

REPORT INFORMATION
  Report Type: Spontaneous
  Country: US (occurrence: US)
  Receive Date: 20140616
  Receipt Date: 20140616
  Transmission Date: 20141212
  Serious: No
  Sender: FDA-Public Use
  Company Number: US-ASTRAZENECA-2014SE39654

PATIENT
  Age: 54 Year
  Sex: Female
  Weight: 54.4 kg

DRUGS (3)
  1. RHINOCORT AQUA [Suspect]
     Indication: TYMPANIC MEMBRANE PERFORATION
     Route: 045
     Dates: start: 2010
  2. RHINOCORT AQUA [Suspect]
     Indication: TYMPANIC MEMBRANE PERFORATION
     Route: 045
  3. XANAX [Concomitant]
     Indication: SLEEP DISORDER
     Dosage: 0.25MG AT HS PRN
     Route: 048
     Dates: start: 2013

REACTIONS (12)
  - Toothache [Recovering/Resolving]
  - Tinnitus [Not Recovered/Not Resolved]
  - Ear pain [Not Recovered/Not Resolved]
  - Feeling abnormal [Not Recovered/Not Resolved]
  - Weight decreased [Not Recovered/Not Resolved]
  - Stress [Not Recovered/Not Resolved]
  - Rhinalgia [Recovering/Resolving]
  - Feeling jittery [Recovered/Resolved]
  - Insomnia [Not Recovered/Not Resolved]
  - Osteitis [Recovering/Resolving]
  - Off label use [Not Recovered/Not Resolved]
  - Intentional product misuse [Recovered/Resolved]
